FAERS Safety Report 4823599-X (Version None)
Quarter: 2005Q4

REPORT INFORMATION
  Report Type: 
  Country: None (occurrence: None)
  Receive Date: 20051107
  Receipt Date: 20051024
  Transmission Date: 20060501
  Serious: Yes (Life-Threatening)
  Sender: FDA-Public Use
  Company Number: 0510029

PATIENT
  Age: 29 Year
  Sex: Female
  Weight: 60 kg

DRUGS (1)
  1. POTASSIUM CHLORIDE [Suspect]
     Indication: FOETAL THERAPEUTIC PROCEDURE
     Dosage: 5 MEQ IV
     Route: 042

REACTIONS (7)
  - AMNESIA [None]
  - APNOEA [None]
  - DRUG ADMINISTRATION ERROR [None]
  - DRUG EXPOSURE DURING PREGNANCY [None]
  - INCORRECT ROUTE OF DRUG ADMINISTRATION [None]
  - LOSS OF CONSCIOUSNESS [None]
  - PULSE ABSENT [None]
